FAERS Safety Report 23689122 (Version 7)
Quarter: 2024Q2

REPORT INFORMATION
  Report Type: Spontaneous
  Country: CA (occurrence: CA)
  Receive Date: 20240330
  Receipt Date: 20240614
  Transmission Date: 20240716
  Serious: Yes (Other)
  Sender: FDA-Public Use
  Company Number: CA-CELLTRION INC.-2024CA007613

PATIENT

DRUGS (4)
  1. INFLECTRA [Suspect]
     Active Substance: INFLIXIMAB-DYYB
     Indication: Crohn^s disease
     Dosage: 300 MG, Q 0, 2, 6, THEN EVERY 8 WEEKS
     Route: 042
     Dates: start: 20240215
  2. INFLECTRA [Suspect]
     Active Substance: INFLIXIMAB-DYYB
     Dosage: 300 MG, Q 0, 2, 6, THEN EVERY 8 WEEKS
     Route: 042
     Dates: start: 20240227
  3. INFLECTRA [Suspect]
     Active Substance: INFLIXIMAB-DYYB
     Dosage: 300 MG, Q 0, 2, 6, THEN EVERY 8 WEEKS
     Route: 042
     Dates: start: 20240326
  4. INFLECTRA [Suspect]
     Active Substance: INFLIXIMAB-DYYB
     Dosage: 300 MG, Q 0, 2, 6, THEN EVERY 8 WEEKS
     Route: 042
     Dates: start: 20240521

REACTIONS (12)
  - Fistula [Recovering/Resolving]
  - Stoma creation [Recovering/Resolving]
  - Vesical fistula [Unknown]
  - Dysuria [Not Recovered/Not Resolved]
  - Urine abnormality [Not Recovered/Not Resolved]
  - Faecaluria [Unknown]
  - Bladder discomfort [Not Recovered/Not Resolved]
  - Urethral discharge [Not Recovered/Not Resolved]
  - Small intestinal resection [Recovering/Resolving]
  - Stoma site pain [Not Recovered/Not Resolved]
  - Anxiety [Not Recovered/Not Resolved]
  - Drug level below therapeutic [Unknown]

NARRATIVE: CASE EVENT DATE: 20240201
